FAERS Safety Report 10238585 (Version 1)
Quarter: 2014Q2

REPORT INFORMATION
  Report Type: Spontaneous
  Country: US (occurrence: US)
  Receive Date: 20140616
  Receipt Date: 20140616
  Transmission Date: 20141212
  Serious: Yes (Other)
  Sender: FDA-Public Use
  Company Number: US-PFIZER INC-2014164432

PATIENT
  Age: 50 Year
  Sex: Female
  Weight: 61.22 kg

DRUGS (3)
  1. LYRICA [Suspect]
     Indication: NEURALGIA
     Dosage: 75 MG, 2X/DAY
     Dates: start: 20140604, end: 20140612
  2. OPANA [Concomitant]
     Indication: PAIN
     Dosage: 15 MG, 2X/DAY
  3. OXYCODONE [Concomitant]
     Indication: PAIN
     Dosage: 10 MG, 4X/DAY

REACTIONS (1)
  - Petechiae [Not Recovered/Not Resolved]
